FAERS Safety Report 6764114-3 (Version None)
Quarter: 2010Q2

REPORT INFORMATION
  Report Type: 
  Country: None (occurrence: None)
  Receive Date: 20100610
  Receipt Date: 20100604
  Transmission Date: 20101027
  Serious: Yes (Hospitalization)
  Sender: FDA-Public Use
  Company Number: US-GILEAD-2010-0028541

PATIENT
  Sex: Female
  Weight: 50.848 kg

DRUGS (11)
  1. LETAIRIS [Suspect]
     Indication: PULMONARY ARTERIAL HYPERTENSION
     Route: 048
     Dates: start: 20080924
  2. PREDNISONE [Concomitant]
  3. EFFEXOR XR [Concomitant]
  4. ATIVAN [Concomitant]
  5. DEPO-PROVERA [Concomitant]
  6. VYVANSE [Concomitant]
  7. OXYGEN [Concomitant]
  8. AMLODIPINE BESYLATE [Concomitant]
  9. AVAPRO [Concomitant]
  10. HYDROXYCHLOROQUINE SULFATE [Concomitant]
  11. TRAMADOL [Concomitant]

REACTIONS (1)
  - MENINGITIS ASEPTIC [None]
